FAERS Safety Report 25369936 (Version 1)
Quarter: 2025Q2

REPORT INFORMATION
  Report Type: Spontaneous
  Country: FR (occurrence: FR)
  Receive Date: 20250528
  Receipt Date: 20250528
  Transmission Date: 20250717
  Serious: Yes (Hospitalization)
  Sender: MYLAN
  Company Number: None

PATIENT
  Age: 76 Year
  Sex: Female

DRUGS (20)
  1. ALPRAZOLAM [Suspect]
     Active Substance: ALPRAZOLAM
     Indication: Anxiety
     Dosage: 1 MILLIGRAM, QD
  2. ALPRAZOLAM [Suspect]
     Active Substance: ALPRAZOLAM
     Dosage: 1 MILLIGRAM, QD
     Route: 048
  3. ALPRAZOLAM [Suspect]
     Active Substance: ALPRAZOLAM
     Dosage: 1 MILLIGRAM, QD
     Route: 048
  4. ALPRAZOLAM [Suspect]
     Active Substance: ALPRAZOLAM
     Dosage: 1 MILLIGRAM, QD
  5. ZOPICLONE [Suspect]
     Active Substance: ZOPICLONE
     Indication: Insomnia
     Dosage: 3.75 MILLIGRAM, QD
  6. ZOPICLONE [Suspect]
     Active Substance: ZOPICLONE
     Dosage: 3.75 MILLIGRAM, QD
     Route: 048
  7. ZOPICLONE [Suspect]
     Active Substance: ZOPICLONE
     Dosage: 3.75 MILLIGRAM, QD
     Route: 048
  8. ZOPICLONE [Suspect]
     Active Substance: ZOPICLONE
     Dosage: 3.75 MILLIGRAM, QD
  9. FENTANYL [Suspect]
     Active Substance: FENTANYL
     Indication: Pain
     Dosage: 1 DOSAGE FORM, Q3D
     Dates: start: 20240801
  10. FENTANYL [Suspect]
     Active Substance: FENTANYL
     Dosage: 1 DOSAGE FORM, Q3D
     Route: 062
     Dates: start: 20240801
  11. FENTANYL [Suspect]
     Active Substance: FENTANYL
     Dosage: 1 DOSAGE FORM, Q3D
     Route: 062
     Dates: start: 20240801
  12. FENTANYL [Suspect]
     Active Substance: FENTANYL
     Dosage: 1 DOSAGE FORM, Q3D
     Dates: start: 20240801
  13. CYAMEMAZINE [Concomitant]
     Active Substance: CYAMEMAZINE
  14. CYAMEMAZINE [Concomitant]
     Active Substance: CYAMEMAZINE
     Route: 065
  15. CYAMEMAZINE [Concomitant]
     Active Substance: CYAMEMAZINE
     Route: 065
  16. CYAMEMAZINE [Concomitant]
     Active Substance: CYAMEMAZINE
  17. HALDOL [Concomitant]
     Active Substance: HALOPERIDOL
     Indication: Product used for unknown indication
  18. HALDOL [Concomitant]
     Active Substance: HALOPERIDOL
     Route: 065
  19. HALDOL [Concomitant]
     Active Substance: HALOPERIDOL
     Route: 065
  20. HALDOL [Concomitant]
     Active Substance: HALOPERIDOL

REACTIONS (2)
  - Altered state of consciousness [Recovered/Resolved]
  - Pneumonia aspiration [Recovered/Resolved]

NARRATIVE: CASE EVENT DATE: 20240807
